FAERS Safety Report 11375996 (Version 2)
Quarter: 2016Q1

REPORT INFORMATION
  Report Type: Report from Study
  Country: US (occurrence: US)
  Receive Date: 20150813
  Receipt Date: 20160115
  Transmission Date: 20160525
  Serious: Yes (Other)
  Sender: FDA-Public Use
  Company Number: US-AMGEN-USASP2015080277

PATIENT
  Age: 67 Year
  Sex: Female

DRUGS (1)
  1. ENBREL [Suspect]
     Active Substance: ETANERCEPT
     Indication: ARTHRITIS
     Dosage: UNK
     Route: 065

REACTIONS (9)
  - Diabetes mellitus [Unknown]
  - Hand deformity [Unknown]
  - Mood altered [Unknown]
  - Vision blurred [Unknown]
  - Device issue [Unknown]
  - Therapeutic response decreased [Unknown]
  - Blood test abnormal [Unknown]
  - Fatigue [Unknown]
  - Headache [Unknown]
